FAERS Safety Report 6271038-7 (Version None)
Quarter: 2009Q3

REPORT INFORMATION
  Report Type: 
  Country: None (occurrence: None)
  Receive Date: 20090716
  Receipt Date: 20090706
  Transmission Date: 20100115
  Serious: Yes (Other)
  Sender: FDA-Public Use
  Company Number: US-ELI_LILLY_AND_COMPANY-US200904006045

PATIENT
  Sex: Female

DRUGS (2)
  1. CYMBALTA [Suspect]
     Indication: MAJOR DEPRESSION
     Dosage: 60 MG, UNK
     Dates: start: 20081118
  2. CONTRACEPTIVES NOS [Concomitant]

REACTIONS (3)
  - ABORTION SPONTANEOUS [None]
  - APATHY [None]
  - DRUG EXPOSURE DURING PREGNANCY [None]
